FAERS Safety Report 5131549-4 (Version None)
Quarter: 2006Q4

REPORT INFORMATION
  Report Type: 
  Country: None (occurrence: None)
  Receive Date: 20061016
  Receipt Date: 20061003
  Transmission Date: 20070319
  Serious: Yes (Life-Threatening, Hospitalization)
  Sender: FDA-Public Use
  Company Number: 2006122354

PATIENT
  Age: 84 Year
  Sex: Female

DRUGS (6)
  1. PREDNISOLONE [Suspect]
     Indication: PEMPHIGOID
     Dosage: (15 MG), ORAL
     Route: 048
  2. ASPIRIN [Suspect]
     Indication: TRANSIENT ISCHAEMIC ATTACK
     Dosage: 75 MG (75 MG, 1 IN 1 D),ORAL
     Route: 048
     Dates: start: 20060803
  3. AQUEOUS CREAM (EMULSIFYING WAX, PARAFFIN, LIQUID, WHITE SOFT PARAFFIN) [Concomitant]
  4. EPADERM (EMULSIFYING WAX, PARAFFIN, LIQUID, PETROLATUM) [Concomitant]
  5. LORAZEPAM (LOREZEPAM) [Concomitant]
  6. VAGIFEM [Concomitant]

REACTIONS (4)
  - GASTROINTESTINAL HAEMORRHAGE [None]
  - HAEMOGLOBIN DECREASED [None]
  - HYPOTENSION [None]
  - PALLOR [None]
